FAERS Safety Report 7724941-2 (Version None)
Quarter: 2011Q3

REPORT INFORMATION
  Report Type: 
  Country: None (occurrence: None)
  Receive Date: 20110901
  Receipt Date: 20110830
  Transmission Date: 20111222
  Serious: Yes (Other)
  Sender: FDA-Public Use
  Company Number: CA-PFIZER INC-2011125182

PATIENT
  Age: 56 Year
  Sex: Male

DRUGS (1)
  1. VARENICLINE TARTRATE [Suspect]
     Dosage: UNK MG, 2X/DAY
     Dates: start: 20110413

REACTIONS (1)
  - HYPERGLYCAEMIA [None]
